FAERS Safety Report 18765957 (Version 1)
Quarter: 2021Q1

REPORT INFORMATION
  Report Type: Spontaneous
  Country: US (occurrence: US)
  Receive Date: 20210121
  Receipt Date: 20210121
  Transmission Date: 20210419
  Serious: No
  Sender: FDA-Public Use
  Company Number: US-JNJFOC-20210123489

PATIENT
  Age: 59 Year
  Sex: Male
  Weight: 111.23 kg

DRUGS (1)
  1. MOTRIN IB [Suspect]
     Active Substance: IBUPROFEN
     Indication: PERIPHERAL SWELLING
     Route: 048
     Dates: start: 20210110, end: 20210110

REACTIONS (2)
  - Epistaxis [Recovered/Resolved]
  - Product use in unapproved indication [Unknown]

NARRATIVE: CASE EVENT DATE: 20210110
